FAERS Safety Report 21077489 (Version 1)
Quarter: 2022Q3

REPORT INFORMATION
  Report Type: Other
  Country: JP (occurrence: JP)
  Receive Date: 20220713
  Receipt Date: 20220713
  Transmission Date: 20221027
  Serious: Yes (Other)
  Sender: FDA-Public Use
  Company Number: JP-CHUGAI-2022026118

PATIENT
  Age: 51 Year
  Sex: Male
  Weight: 68.1 kg

DRUGS (4)
  1. ATEZOLIZUMAB [Suspect]
     Active Substance: ATEZOLIZUMAB
     Indication: Lung adenocarcinoma
     Dosage: 1200 MILLIGRAM
     Route: 041
     Dates: start: 20210129, end: 20220325
  2. CARBOPLATIN [Concomitant]
     Active Substance: CARBOPLATIN
     Indication: Lung adenocarcinoma
     Dosage: 650 MILLIGRAM
     Route: 041
     Dates: start: 20210129
  3. CARBOPLATIN [Concomitant]
     Active Substance: CARBOPLATIN
     Dosage: 655 MILLIGRAM
     Route: 041
     Dates: end: 20210402
  4. PACLITAXEL [Concomitant]
     Active Substance: PACLITAXEL
     Indication: Lung adenocarcinoma
     Dosage: 180 MILLIGRAM
     Route: 041
     Dates: start: 20210129, end: 20210416

REACTIONS (1)
  - Endocrine ophthalmopathy [Recovering/Resolving]

NARRATIVE: CASE EVENT DATE: 20220412
